FAERS Safety Report 26214287 (Version 1)
Quarter: 2025Q4

REPORT INFORMATION
  Report Type: Spontaneous
  Country: US (occurrence: US)
  Receive Date: 20251230
  Receipt Date: 20251230
  Transmission Date: 20260118
  Serious: Yes (Death, Other)
  Sender: AMGEN
  Company Number: US-AMGEN-USASP2025255889

PATIENT

DRUGS (8)
  1. BLINATUMOMAB [Suspect]
     Active Substance: BLINATUMOMAB
     Indication: B-cell type acute leukaemia
     Dosage: 9 MICROGRAM, QD, (FOR 2 DAYS)
     Route: 040
  2. BLINATUMOMAB [Suspect]
     Active Substance: BLINATUMOMAB
     Indication: Philadelphia chromosome negative
     Dosage: 28 MICROGRAM, QD
     Route: 040
  3. DEXAMETHASONE [Concomitant]
     Active Substance: DEXAMETHASONE
     Indication: B-cell type acute leukaemia
     Dosage: 20 MILLIGRAM, (DAYS 1-4 OF CYCLE 1)
     Route: 040
  4. DEXAMETHASONE [Concomitant]
     Active Substance: DEXAMETHASONE
     Indication: Philadelphia chromosome negative
  5. VINCRISTINE [Concomitant]
     Active Substance: VINCRISTINE
     Indication: B-cell type acute leukaemia
     Dosage: 1 MILLIGRAM, (ON DAY 4 OF CYCLE 1)
     Route: 040
  6. VINCRISTINE [Concomitant]
     Active Substance: VINCRISTINE
     Indication: Philadelphia chromosome negative
  7. INOTUZUMAB OZOGAMICIN [Concomitant]
     Active Substance: INOTUZUMAB OZOGAMICIN
     Indication: B-cell type acute leukaemia
     Dosage: 0.6 MILLIGRAM/SQ. METER, (ON DAY 1 OF CYCLE 1)
     Route: 040
  8. INOTUZUMAB OZOGAMICIN [Concomitant]
     Active Substance: INOTUZUMAB OZOGAMICIN
     Indication: Philadelphia chromosome negative
     Dosage: 0.3 MILLIGRAM/SQ. METER, (ON DAY 8 OF CYCLE 1)
     Route: 040

REACTIONS (14)
  - Death [Fatal]
  - Multiple organ dysfunction syndrome [Fatal]
  - Myocardial infarction [Fatal]
  - Complications of transplant surgery [Fatal]
  - Pneumonia [Fatal]
  - Respiratory failure [Fatal]
  - Acute lymphocytic leukaemia recurrent [Unknown]
  - Thrombocytopenia [Unknown]
  - Leukopenia [Unknown]
  - Neutropenia [Unknown]
  - Cytokine release syndrome [Unknown]
  - Alanine aminotransferase increased [Unknown]
  - Anaemia [Unknown]
  - Mental status changes [Unknown]
